FAERS Safety Report 11684670 (Version 6)
Quarter: 2016Q1

REPORT INFORMATION
  Report Type: Spontaneous
  Country: US (occurrence: US)
  Receive Date: 20151029
  Receipt Date: 20160115
  Transmission Date: 20160525
  Serious: Yes (Death, Hospitalization, Other)
  Sender: FDA-Public Use
  Company Number: US-UNITED THERAPEUTICS-UNT-2015-013001

PATIENT
  Age: 77 Year
  Sex: Female
  Weight: 77.98 kg

DRUGS (5)
  1. REMODULIN [Suspect]
     Active Substance: TREPROSTINIL
     Indication: PULMONARY HYPERTENSION
     Dosage: 0.067 ?G/KG, CONTINUING
     Route: 041
     Dates: start: 20080724
  2. REMODULIN [Suspect]
     Active Substance: TREPROSTINIL
     Dosage: 0.067 ?G/KG, CONTINUING
     Route: 058
     Dates: start: 20080304
  3. REMODULIN [Suspect]
     Active Substance: TREPROSTINIL
     Dosage: 0.067 ?G/KG, CONTINUING
     Route: 041
  4. ADEMPAS [Suspect]
     Active Substance: RIOCIGUAT
     Indication: PRODUCT USED FOR UNKNOWN INDICATION
     Dosage: 1 MG, UNK
  5. WARFARIN [Concomitant]
     Active Substance: WARFARIN
     Indication: PRODUCT USED FOR UNKNOWN INDICATION

REACTIONS (11)
  - Nausea [Unknown]
  - Vomiting [Unknown]
  - Death [Fatal]
  - Influenza [Unknown]
  - Fatigue [Unknown]
  - Contusion [Unknown]
  - Device related infection [Unknown]
  - Dehydration [Unknown]
  - Dysphagia [Unknown]
  - Decreased appetite [Unknown]
  - Skin ulcer [Unknown]

NARRATIVE: CASE EVENT DATE: 2015
